FAERS Safety Report 5975277-1 (Version None)
Quarter: 2008Q4

REPORT INFORMATION
  Report Type: 
  Country: None (occurrence: None)
  Receive Date: 20081202
  Receipt Date: 20081121
  Transmission Date: 20090506
  Serious: Yes (Other)
  Sender: FDA-Public Use
  Company Number: US-BAYER-200836231NA

PATIENT
  Age: 40 Year
  Sex: Female
  Weight: 73 kg

DRUGS (4)
  1. MIRENA [Suspect]
     Indication: DRUG USE FOR UNKNOWN INDICATION
     Route: 015
     Dates: start: 20071212, end: 20080829
  2. FLOVENT [Concomitant]
     Indication: DRUG USE FOR UNKNOWN INDICATION
  3. LEVOXYL [Concomitant]
     Indication: DRUG USE FOR UNKNOWN INDICATION
  4. NASONEX [Concomitant]
     Indication: DRUG USE FOR UNKNOWN INDICATION

REACTIONS (2)
  - IUCD COMPLICATION [None]
  - UTERINE RUPTURE [None]
